FAERS Safety Report 5079268-7 (Version None)
Quarter: 2006Q3

REPORT INFORMATION
  Report Type: 
  Country: None (occurrence: None)
  Receive Date: 20060814
  Receipt Date: 20060810
  Transmission Date: 20061208
  Serious: Yes (Other)
  Sender: FDA-Public Use
  Company Number: US-GLAXOSMITHKLINE-A0616201A

PATIENT
  Age: 48 Year
  Sex: Male

DRUGS (7)
  1. GOODY'S EXTRA STRENGTH HEADACHE POWDER [Suspect]
     Indication: ARTHRITIS
     Route: 048
  2. ARTHROTEC [Concomitant]
  3. MEGACE [Concomitant]
  4. PROTONIX [Concomitant]
  5. TRAZODONE HCL [Concomitant]
  6. PERCOCET [Concomitant]
  7. DURAGESIC-100 [Concomitant]

REACTIONS (2)
  - DEPENDENCE [None]
  - OVERDOSE [None]
